FAERS Safety Report 8452486 (Version 1)
Quarter: 2012Q4

REPORT INFORMATION
  Report Type: 
  Country: US (occurrence: US)
  Receive Date: 20120914
  Receipt Date: 20120914
  Transmission Date: 20130627
  Serious: Yes (Other)
  Sender: FDA-Public Use
  Company Number: US-SHIRE-ALL1-2012-01247

PATIENT
  Age: 16 Year
  Sex: Female
  Weight: 65.76 kg

DRUGS (2)
  1. VYVANSE [Suspect]
     Indication: ATTENTION DEFICIT/HYPERACTIVITY DISORDER
     Dosage: 30 mg, 1x/day:qd (after food)
     Route: 065
     Dates: start: 20120229
  2. TOPAMAX [Concomitant]
     Indication: MIGRAINE
     Dosage: UNK, Unknown
     Route: 065
     Dates: start: 201202

REACTIONS (4)
  - Dyspnoea [Not Recovered/Not Resolved]
  - Chest discomfort [Not Recovered/Not Resolved]
  - Abdominal discomfort [Not Recovered/Not Resolved]
  - Dizziness [Not Recovered/Not Resolved]
